FAERS Safety Report 17939042 (Version 1)
Quarter: 2020Q2

REPORT INFORMATION
  Report Type: Spontaneous
  Country: DE (occurrence: DE)
  Receive Date: 20200625
  Receipt Date: 20200625
  Transmission Date: 20200714
  Serious: Yes (Life-Threatening, Hospitalization)
  Sender: FDA-Public Use
  Company Number: DE-TEVA-2020-DE-1790608

PATIENT
  Age: 84 Year
  Sex: Female

DRUGS (6)
  1. METAMIZOL [Concomitant]
     Active Substance: METAMIZOLE SODIUM
     Dosage: IF NECESSARY UP TO 4X A DAY
  2. ACETYLSALICYLSAURE [Concomitant]
     Active Substance: ASPIRIN
     Dosage: 100 MILLIGRAM DAILY; 1-0-0-0
  3. METFORMIN [Suspect]
     Active Substance: METFORMIN HYDROCHLORIDE
     Dosage: 1700 MILLIGRAM DAILY; 1-1-0-0
  4. PANTOPRAZOL [Concomitant]
     Active Substance: PANTOPRAZOLE SODIUM
     Dosage: 40 MILLIGRAM DAILY; 1-0-0-0
  5. IBUPROFEN. [Concomitant]
     Active Substance: IBUPROFEN
     Dosage: 600 MG, NEED UP TO 3X1 A DAY
  6. INSULIN-ISOPHAN (HUMAN) [Concomitant]
     Dosage: 20 IU (INTERNATIONAL UNIT) DAILY;

REACTIONS (4)
  - Hyperventilation [Unknown]
  - Hyperglycaemia [Unknown]
  - Vomiting [Unknown]
  - Nausea [Unknown]
